FAERS Safety Report 23935630 (Version 2)
Quarter: 2024Q2

REPORT INFORMATION
  Report Type: Spontaneous
  Country: PT (occurrence: PT)
  Receive Date: 20240604
  Receipt Date: 20240612
  Transmission Date: 20240717
  Serious: Yes (Life-Threatening, Hospitalization, Other)
  Sender: FDA-Public Use
  Company Number: PT-MLMSERVICE-20240513-PI058513-00327-1

PATIENT
  Age: 45 Year
  Sex: Female

DRUGS (1)
  1. VALPROIC ACID [Suspect]
     Active Substance: VALPROIC ACID
     Indication: Migraine
     Dosage: UNK
     Route: 065

REACTIONS (5)
  - Drug-induced liver injury [Recovered/Resolved]
  - Hepatitis toxic [Recovering/Resolving]
  - Acute hepatic failure [Recovering/Resolving]
  - Hepatotoxicity [Recovering/Resolving]
  - Off label use [Recovering/Resolving]
